FAERS Safety Report 23729440 (Version 2)
Quarter: 2024Q2

REPORT INFORMATION
  Report Type: Spontaneous
  Country: US (occurrence: US)
  Receive Date: 20240410
  Receipt Date: 20240424
  Transmission Date: 20240715
  Serious: Yes (Hospitalization, Other)
  Sender: FDA-Public Use
  Company Number: US-ETHYPHARM-2024000943

PATIENT

DRUGS (1)
  1. BUPRENORPHINE HYDROCHLORIDE\NALOXONE HYDROCHLORIDE [Suspect]
     Active Substance: BUPRENORPHINE HYDROCHLORIDE\NALOXONE HYDROCHLORIDE
     Indication: Pain

REACTIONS (4)
  - Stress cardiomyopathy [Recovering/Resolving]
  - Cardiogenic shock [Recovering/Resolving]
  - Off label use [Unknown]
  - Drug withdrawal syndrome [Recovering/Resolving]
